FAERS Safety Report 19464415 (Version 3)
Quarter: 2021Q3

REPORT INFORMATION
  Report Type: Spontaneous
  Country: US (occurrence: US)
  Receive Date: 20210626
  Receipt Date: 20210831
  Transmission Date: 20211014
  Serious: Yes (Other)
  Sender: FDA-Public Use
  Company Number: US-TEVA-2021-US-1925678

PATIENT
  Age: 63 Year
  Sex: Male

DRUGS (5)
  1. VALSARTAN/HYDROCHLORTHIAZIDE MYLAN [Suspect]
     Active Substance: HYDROCHLOROTHIAZIDE\VALSARTAN
     Indication: HYPERTENSION
     Dosage: 80MG/12.5MG
     Route: 065
     Dates: start: 20140120, end: 20140521
  2. VALSARTAN/HYDROCHLORTHIAZIDE AUROBINDO [Suspect]
     Active Substance: HYDROCHLOROTHIAZIDE\VALSARTAN
     Dosage: 160MG/25MG
     Dates: start: 20170823, end: 20191007
  3. VALSARTAN/HYDROCHLORTHIAZIDE MACLEODS [Suspect]
     Active Substance: HYDROCHLOROTHIAZIDE\VALSARTAN
     Indication: HYPERTENSION
     Dosage: 160MG/25MG
     Route: 065
     Dates: start: 20181020, end: 2019
  4. VALSARTAN/HYDROCHLORTHIAZIDE AUROBINDO [Suspect]
     Active Substance: HYDROCHLOROTHIAZIDE\VALSARTAN
     Indication: HYPERTENSION
     Dosage: 160MG/12.5MG
     Route: 065
     Dates: start: 20160823, end: 20170908
  5. VALSARTAN/HYDROCHLORTHIAZIDE SOLCO [Suspect]
     Active Substance: HYDROCHLOROTHIAZIDE\VALSARTAN
     Indication: HYPERTENSION
     Dosage: 160MG/25MG
     Route: 065
     Dates: start: 20180409, end: 20180718

REACTIONS (1)
  - Colorectal cancer [Unknown]
